FAERS Safety Report 8880212 (Version 1)
Quarter: 2012Q4

REPORT INFORMATION
  Report Type: 
  Country: NL (occurrence: NL)
  Receive Date: 20121101
  Receipt Date: 20121101
  Transmission Date: 20130627
  Serious: Yes (Other)
  Sender: FDA-Public Use
  Company Number: NL-ASTRAZENECA-2012SE81471

PATIENT
  Age: 72 Year
  Sex: Female

DRUGS (5)
  1. ROSUVASTATIN [Suspect]
     Indication: HYPERCHOLESTEROLAEMIA
     Route: 048
     Dates: start: 20120509, end: 20120904
  2. CALCIUM D SANDOZ [Concomitant]
     Dosage: 600 MG/400IE ONE DOSAGE FORM EVERY DAY
     Route: 048
  3. ACETYLSALICYLZUUR CARDIO [Concomitant]
     Route: 048
     Dates: start: 20120706
  4. PERSANTIN RETARD [Concomitant]
     Route: 048
     Dates: start: 20120724
  5. PARACETAMOL/CODEINEFOSFAAT PCH [Concomitant]
     Dosage: 500/10 MG ONE DOSE
     Route: 048

REACTIONS (7)
  - Ataxia [Recovering/Resolving]
  - Gait disturbance [Recovering/Resolving]
  - Sensory disturbance [Recovering/Resolving]
  - Transient ischaemic attack [Unknown]
  - Anxiety disorder [Unknown]
  - Hyperventilation [Unknown]
  - Dizziness [Unknown]
